FAERS Safety Report 8483347-1 (Version None)
Quarter: 2012Q3

REPORT INFORMATION
  Report Type: 
  Country: None (occurrence: None)
  Receive Date: 20120702
  Receipt Date: 20120626
  Transmission Date: 20120928
  Serious: Yes (Hospitalization)
  Sender: FDA-Public Use
  Company Number: AT-BAXTER-2012BAX009784

PATIENT
  Sex: Female

DRUGS (6)
  1. EXTRANEAL [Suspect]
     Route: 033
     Dates: start: 20120426
  2. METOPROLOL TARTRATE [Concomitant]
     Route: 065
  3. DOXAZOSIN MESYLATE [Concomitant]
     Route: 065
  4. AMLODIPINE BESYLATE [Concomitant]
     Route: 065
  5. OMEPRAZOLE [Concomitant]
     Route: 065
  6. LASIX [Concomitant]
     Route: 065

REACTIONS (1)
  - AGRANULOCYTOSIS [None]
